FAERS Safety Report 9354856 (Version 1)
Quarter: 2013Q2

REPORT INFORMATION
  Report Type: Spontaneous
  Country: US (occurrence: None)
  Receive Date: 20130618
  Receipt Date: 20130618
  Transmission Date: 20140414
  Serious: Yes (Other)
  Sender: FDA-Public Use
  Company Number: None

PATIENT
  Age: 48 Year
  Sex: Female

DRUGS (1)
  1. INCIVEK [Suspect]
     Indication: HEPATITIS C
     Dosage: 375 MG- 2 TABS 3 TIMES DAILY, 3 TIMES DAILY, ORAL
     Route: 048

REACTIONS (2)
  - Pruritus [None]
  - Pain [None]
